FAERS Safety Report 25828297 (Version 1)
Quarter: 2025Q3

REPORT INFORMATION
  Report Type: Spontaneous
  Country: US (occurrence: US)
  Receive Date: 20250921
  Receipt Date: 20250921
  Transmission Date: 20251021
  Serious: No
  Sender: SANOFI AVENTIS
  Company Number: US-SA-2025SA280001

PATIENT
  Age: 62 Year
  Sex: Male

DRUGS (1)
  1. KEVZARA [Suspect]
     Active Substance: SARILUMAB
     Indication: Gout
     Dosage: 200 MG, QOW
     Route: 058

REACTIONS (3)
  - Bone loss [Unknown]
  - Liver function test increased [Unknown]
  - Product use in unapproved indication [Unknown]
